FAERS Safety Report 25764268 (Version 1)
Quarter: 2025Q3

REPORT INFORMATION
  Report Type: Spontaneous
  Country: US (occurrence: US)
  Receive Date: 20250905
  Receipt Date: 20250905
  Transmission Date: 20251021
  Serious: No
  Sender: DOMPE FARMACEUTICI
  Company Number: US-FARMAPROD-202412-4305

PATIENT
  Age: 74 Year
  Sex: Female
  Weight: 65.77 kg

DRUGS (17)
  1. OXERVATE [Suspect]
     Active Substance: CENEGERMIN-BKBJ
     Indication: Neurotrophic keratopathy
     Route: 047
     Dates: start: 20241219
  2. OXERVATE [Suspect]
     Active Substance: CENEGERMIN-BKBJ
  3. MIEBO [Concomitant]
     Active Substance: PERFLUOROHEXYLOCTANE
  4. VIIBRYD [Concomitant]
     Active Substance: VILAZODONE HYDROCHLORIDE
  5. NEBIVOLOL [Concomitant]
     Active Substance: NEBIVOLOL
  6. LIVALO [Concomitant]
     Active Substance: PITAVASTATIN CALCIUM
  7. CLONAZEPAM [Concomitant]
     Active Substance: CLONAZEPAM
  8. CLOPIDOGREL [Concomitant]
     Active Substance: CLOPIDOGREL BISULFATE
  9. VILAZODONE HYDROCHLORIDE [Concomitant]
     Active Substance: VILAZODONE HYDROCHLORIDE
  10. BYSTOLIC [Concomitant]
     Active Substance: NEBIVOLOL HYDROCHLORIDE
  11. PITAVASTATIN CALCIUM [Concomitant]
     Active Substance: PITAVASTATIN CALCIUM
  12. RITALIN [Concomitant]
     Active Substance: METHYLPHENIDATE HYDROCHLORIDE
  13. NURTEC ODT [Concomitant]
     Active Substance: RIMEGEPANT SULFATE
  14. SYMBICORT [Concomitant]
     Active Substance: BUDESONIDE\FORMOTEROL FUMARATE DIHYDRATE
  15. RETIN-A [Concomitant]
     Active Substance: TRETINOIN
  16. LOSARTAN POTASSIUM [Concomitant]
     Active Substance: LOSARTAN POTASSIUM
  17. RELAXIUM FOR SLEEP [Concomitant]

REACTIONS (4)
  - Visual impairment [Unknown]
  - Eye pain [Not Recovered/Not Resolved]
  - Product dose omission issue [Unknown]
  - Ocular hyperaemia [Unknown]

NARRATIVE: CASE EVENT DATE: 20250221
